FAERS Safety Report 8874574 (Version 2)
Quarter: 2012Q4

REPORT INFORMATION
  Report Type: 
  Country: US (occurrence: US)
  Receive Date: 20121023
  Receipt Date: 20121106
  Transmission Date: 20130627
  Serious: No
  Sender: FDA-Public Use
  Company Number: US-VERTEX PHARMACEUTICAL INC.-2012-023207

PATIENT
  Age: 53 Year
  Sex: Female
  Weight: 62 kg

DRUGS (8)
  1. VX-950 [Suspect]
     Indication: HEPATITIS C
     Dosage: 750 mg, tid
     Route: 048
     Dates: start: 20121003
  2. RIBAVIRIN [Suspect]
     Indication: HEPATITIS C
     Dosage: 600mg AM, 400mg PM
     Route: 048
     Dates: start: 20121003, end: 20121025
  3. RIBAVIRIN [Suspect]
     Dosage: 2pills am, 1 pill pm
     Dates: start: 20121025
  4. PEGASYS [Suspect]
     Indication: HEPATITIS C
     Dosage: 180 ?g, weekly
     Route: 058
     Dates: start: 20121003
  5. HYDROCODONE [Concomitant]
     Indication: NECK PAIN
     Dosage: UNK, prn
     Route: 048
  6. CITALOPRAM [Concomitant]
     Indication: DEPRESSION
     Dosage: 20 mg, qd
     Route: 048
  7. MIRTAZAPINE [Concomitant]
     Indication: DEPRESSION
     Dosage: 50 mg, qd
     Route: 048
  8. NEXIUM                             /01479302/ [Concomitant]
     Indication: GASTROOESOPHAGEAL REFLUX DISEASE

REACTIONS (8)
  - Dyspnoea [Not Recovered/Not Resolved]
  - Dizziness [Not Recovered/Not Resolved]
  - Headache [Not Recovered/Not Resolved]
  - Blood test abnormal [Not Recovered/Not Resolved]
  - Fatigue [Not Recovered/Not Resolved]
  - Rash generalised [Recovered/Resolved]
  - Retching [Not Recovered/Not Resolved]
  - Vomiting [Not Recovered/Not Resolved]
